FAERS Safety Report 6015515-2 (Version None)
Quarter: 2008Q4

REPORT INFORMATION
  Report Type: 
  Country: None (occurrence: None)
  Receive Date: 20081222
  Receipt Date: 20081215
  Transmission Date: 20090506
  Serious: Yes (Death)
  Sender: FDA-Public Use
  Company Number: US-PFIZER INC-2008153618

PATIENT
  Age: 66 Year
  Sex: Male

DRUGS (3)
  1. AMLODIPINE BESYLATE [Suspect]
     Route: 048
  2. CLOZAPINE [Suspect]
     Route: 048
  3. PARACETAMOL [Suspect]
     Route: 048

REACTIONS (1)
  - COMPLETED SUICIDE [None]
